FAERS Safety Report 10907842 (Version 1)
Quarter: 2015Q1

REPORT INFORMATION
  Report Type: Spontaneous
  Country: US (occurrence: None)
  Receive Date: 20150309
  Receipt Date: 20150309
  Transmission Date: 20150721
  Serious: Yes (Hospitalization)
  Sender: FDA-Public Use
  Company Number: None

PATIENT
  Age: 65 Year
  Sex: Male
  Weight: 62.4 kg

DRUGS (4)
  1. IMIPENEM AND CILASTATIN [Suspect]
     Active Substance: CILASTATIN SODIUM\IMIPENEM
     Route: 042
     Dates: start: 20140913, end: 20140915
  2. MEROPENEM. [Suspect]
     Active Substance: MEROPENEM
     Indication: ABDOMINAL INFECTION
     Route: 042
     Dates: start: 20140908, end: 20140912
  3. IMIPENEM AND CILASTATIN [Suspect]
     Active Substance: CILASTATIN SODIUM\IMIPENEM
     Indication: ABDOMINAL INFECTION
     Route: 042
     Dates: start: 20140913, end: 20140915
  4. MEROPENEM. [Suspect]
     Active Substance: MEROPENEM
     Indication: PROPHYLAXIS
     Route: 042
     Dates: start: 20140908, end: 20140912

REACTIONS (1)
  - Clostridium difficile colitis [None]

NARRATIVE: CASE EVENT DATE: 20140915
